FAERS Safety Report 12376202 (Version 1)
Quarter: 2016Q2

REPORT INFORMATION
  Report Type: Spontaneous
  Country: US (occurrence: US)
  Receive Date: 20160517
  Receipt Date: 20160517
  Transmission Date: 20160815
  Serious: No
  Sender: FDA-Public Use
  Company Number: US-RELYPSA-RLY2016000113

PATIENT

DRUGS (3)
  1. VITAMINS                           /00067501/ [Concomitant]
     Active Substance: VITAMINS
  2. SODIUM [Concomitant]
     Active Substance: SODIUM
  3. VELTASSA [Suspect]
     Active Substance: PATIROMER
     Dosage: 8.4 UNK, UNK
     Dates: start: 20160220, end: 20160223

REACTIONS (1)
  - Diarrhoea [Not Recovered/Not Resolved]

NARRATIVE: CASE EVENT DATE: 201602
